FAERS Safety Report 11534805 (Version 3)
Quarter: 2015Q4

REPORT INFORMATION
  Report Type: Spontaneous
  Country: US (occurrence: US)
  Receive Date: 20150922
  Receipt Date: 20151103
  Transmission Date: 20160304
  Serious: Yes (Hospitalization)
  Sender: FDA-Public Use
  Company Number: US-JNJFOC-20150800538

PATIENT
  Age: 79 Year
  Sex: Female

DRUGS (3)
  1. IMBRUVICA [Suspect]
     Active Substance: IBRUTINIB
     Indication: ACUTE LYMPHOCYTIC LEUKAEMIA
     Route: 048
     Dates: start: 2015, end: 201509
  2. XANAX [Concomitant]
     Active Substance: ALPRAZOLAM
  3. IMBRUVICA [Suspect]
     Active Substance: IBRUTINIB
     Indication: ACUTE LYMPHOCYTIC LEUKAEMIA
     Route: 048
     Dates: start: 20150606, end: 2015

REACTIONS (7)
  - Depression [Recovering/Resolving]
  - Rash erythematous [Unknown]
  - Off label use [Unknown]
  - Skin discolouration [Unknown]
  - Productive cough [Unknown]
  - Insomnia [Unknown]
  - Drug dose omission [None]

NARRATIVE: CASE EVENT DATE: 2015
